FAERS Safety Report 5500835-8 (Version None)
Quarter: 2007Q4

REPORT INFORMATION
  Report Type: 
  Country: None (occurrence: None)
  Receive Date: 20071029
  Receipt Date: 20071024
  Transmission Date: 20080405
  Serious: Yes (Hospitalization)
  Sender: FDA-Public Use
  Company Number: B0492380A

PATIENT
  Age: 39 Year
  Sex: Female

DRUGS (3)
  1. LAMIVUDINE [Suspect]
     Dosage: 300MG PER DAY
     Route: 065
  2. VIRAMUNE [Suspect]
     Indication: HIV INFECTION
     Dosage: 400MG PER DAY
     Route: 048
  3. DIDANOSINE [Suspect]
     Dosage: 400MG PER DAY
     Route: 065

REACTIONS (5)
  - ABDOMINAL DISTENSION [None]
  - CONSTIPATION [None]
  - LACTASE DEFICIENCY [None]
  - MITOCHONDRIAL CYTOPATHY [None]
  - PORTAL VEIN THROMBOSIS [None]
